FAERS Safety Report 4268674-6 (Version None)
Quarter: 2004Q1

REPORT INFORMATION
  Report Type: 
  Country: None (occurrence: None)
  Receive Date: 20040109
  Receipt Date: 20031212
  Transmission Date: 20041129
  Serious: Yes (Other)
  Sender: FDA-Public Use
  Company Number: 2003AP000568

PATIENT
  Age: 55 Year
  Sex: Female
  Weight: 43.9989 kg

DRUGS (3)
  1. IPRATROPIUM BROMIDE [Suspect]
     Dosage: NASAL
     Route: 045
  2. ATENOLOL [Concomitant]
  3. LISINOPRIL [Concomitant]

REACTIONS (4)
  - BLOOD PRESSURE INCREASED [None]
  - EPISTAXIS [None]
  - FACE INJURY [None]
  - PHARMACEUTICAL PRODUCT COMPLAINT [None]
